FAERS Safety Report 21630268 (Version 1)
Quarter: 2022Q4

REPORT INFORMATION
  Report Type: Spontaneous
  Country: US (occurrence: US)
  Receive Date: 20221122
  Receipt Date: 20221122
  Transmission Date: 20230113
  Serious: No
  Sender: FDA-Public Use
  Company Number: US-JNJFOC-20221135791

PATIENT
  Sex: Female

DRUGS (3)
  1. UPTRAVI [Suspect]
     Active Substance: SELEXIPAG
     Indication: Product used for unknown indication
     Route: 048
  2. AMBRISENTAN [Suspect]
     Active Substance: AMBRISENTAN
     Indication: Product used for unknown indication
     Route: 048
     Dates: start: 20210803
  3. TADALAFIL [Concomitant]
     Active Substance: TADALAFIL

REACTIONS (5)
  - Headache [Unknown]
  - Pain in jaw [Unknown]
  - Toothache [Unknown]
  - Pain in extremity [Unknown]
  - Anxiety [Unknown]
